FAERS Safety Report 25406554 (Version 3)
Quarter: 2025Q3

REPORT INFORMATION
  Report Type: Report from Study
  Country: US (occurrence: US)
  Receive Date: 20250606
  Receipt Date: 20250901
  Transmission Date: 20251021
  Serious: Yes (Hospitalization)
  Sender: JOHNSON AND JOHNSON
  Company Number: US-JNJFOC-20250523517

PATIENT
  Age: 11 Month
  Sex: Male

DRUGS (2)
  1. UPTRAVI [Suspect]
     Active Substance: SELEXIPAG
     Indication: Pulmonary arterial hypertension
     Route: 048
     Dates: start: 202504
  2. TRACLEER [Suspect]
     Active Substance: BOSENTAN
     Indication: Product used for unknown indication
     Route: 048

REACTIONS (3)
  - Viral infection [Unknown]
  - Hospitalisation [Not Recovered/Not Resolved]
  - Off label use [Unknown]

NARRATIVE: CASE EVENT DATE: 20250826
